FAERS Safety Report 9357596 (Version 3)
Quarter: 2013Q3

REPORT INFORMATION
  Report Type: Spontaneous
  Country: JP (occurrence: JP)
  Receive Date: 20130620
  Receipt Date: 20130716
  Transmission Date: 20140515
  Serious: Yes (Hospitalization)
  Sender: FDA-Public Use
  Company Number: JP-AMGEN-JPNSP2013043147

PATIENT
  Age: 64 Year
  Sex: Male
  Weight: 53 kg

DRUGS (12)
  1. RANMARK [Suspect]
     Indication: METASTASES TO BONE
     Dosage: 120 MG, QD
     Route: 058
     Dates: start: 20130115, end: 20130115
  2. RANMARK [Suspect]
     Indication: PROSTATE CANCER
  3. SUTENT [Suspect]
     Indication: RENAL CANCER
     Route: 048
     Dates: start: 20130108, end: 20130122
  4. CELECOX [Concomitant]
     Indication: METASTASES TO BONE
     Route: 048
     Dates: start: 20130110
  5. TAKEPRON OD [Concomitant]
     Indication: GASTRITIS PROPHYLAXIS
     Route: 048
     Dates: start: 20130110
  6. ALFAROL [Concomitant]
     Indication: PROPHYLAXIS
     Route: 048
     Dates: start: 20130115, end: 20130121
  7. ALFAROL [Concomitant]
     Route: 048
     Dates: start: 20130122
  8. AZUNOL [Concomitant]
     Indication: STOMATITIS
     Dosage: ADEQUATE
     Route: 050
     Dates: start: 20130110, end: 20130130
  9. AZUNOL [Concomitant]
     Dosage: ADEQUATE
     Route: 050
     Dates: start: 20130110, end: 20130130
  10. ASPARA-CA [Concomitant]
     Indication: PROPHYLAXIS
     Dosage: UNK
     Route: 048
     Dates: start: 20130218
  11. ASPARA-CA [Concomitant]
     Route: 048
     Dates: start: 20130218
  12. ASPARA-CA [Concomitant]
     Route: 048
     Dates: start: 20130218

REACTIONS (1)
  - Pyrexia [Recovered/Resolved]
